FAERS Safety Report 17711061 (Version 1)
Quarter: 2020Q2

REPORT INFORMATION
  Report Type: Spontaneous
  Country: US (occurrence: US)
  Receive Date: 20200427
  Receipt Date: 20200427
  Transmission Date: 20200714
  Serious: No
  Sender: FDA-Public Use
  Company Number: US-PFIZER INC-2020164702

PATIENT
  Age: 51 Year
  Sex: Male

DRUGS (1)
  1. VORICONAZOLE. [Suspect]
     Active Substance: VORICONAZOLE
     Dosage: 200 MG, 2X/DAY (TAKE 1 TABLET EVERY 12 HOURS)
     Route: 048

REACTIONS (3)
  - Insomnia [Unknown]
  - Blood creatinine increased [Unknown]
  - Arthralgia [Unknown]
